FAERS Safety Report 4474410-0 (Version None)
Quarter: 2004Q4

REPORT INFORMATION
  Report Type: 
  Country: None (occurrence: None)
  Receive Date: 20041012
  Receipt Date: 20041004
  Transmission Date: 20050328
  Serious: Yes (Hospitalization)
  Sender: FDA-Public Use
  Company Number: 2004-10-0038

PATIENT
  Sex: Male

DRUGS (4)
  1. VIRAFERONPEG [Suspect]
     Indication: HEPATITIS C
     Dates: start: 20040927
  2. REBETOL [Suspect]
     Indication: HEPATITIS C
     Dosage: ORAL
     Route: 048
  3. NEURONTIN FOR ENCEPHALOPATHY [Concomitant]
  4. SUBUTEX [Concomitant]

REACTIONS (1)
  - HEPATIC FAILURE [None]
